FAERS Safety Report 9887507 (Version 1)
Quarter: 2014Q1

REPORT INFORMATION
  Report Type: Spontaneous
  Country: US (occurrence: None)
  Receive Date: 20140207
  Receipt Date: 20140207
  Transmission Date: 20141002
  Serious: Yes (Hospitalization)
  Sender: FDA-Public Use
  Company Number: None

PATIENT
  Age: 41 Year
  Sex: Male
  Weight: 100.2 kg

DRUGS (2)
  1. KETOCONAZOLE [Suspect]
     Indication: ANTIFUNGAL TREATMENT
     Route: 048
     Dates: start: 20110530, end: 20110530
  2. DILTIAZEM [Suspect]
     Indication: HYPERTENSION
     Route: 048
     Dates: start: 20101202

REACTIONS (3)
  - Bradycardia [None]
  - Hypotension [None]
  - Drug interaction [None]
